FAERS Safety Report 11416493 (Version 1)
Quarter: 2015Q3

REPORT INFORMATION
  Report Type: Spontaneous
  Country: GB (occurrence: GB)
  Receive Date: 20150825
  Receipt Date: 20150825
  Transmission Date: 20151125
  Serious: Yes (Life-Threatening, Hospitalization)
  Sender: FDA-Public Use
  Company Number: GB-TEVA-587004ACC

PATIENT
  Age: 75 Year
  Sex: Male
  Weight: 66.67 kg

DRUGS (5)
  1. LISINOPRIL. [Concomitant]
     Active Substance: LISINOPRIL
  2. LANSOPRAZOLE. [Concomitant]
     Active Substance: LANSOPRAZOLE
  3. PREDNISOLON [Concomitant]
     Active Substance: PREDNISOLONE
  4. BENDROFLUMETHIAZIDE [Concomitant]
     Active Substance: BENDROFLUMETHIAZIDE
  5. METHOTREXATE [Suspect]
     Active Substance: METHOTREXATE
     Indication: JOINT SWELLING
     Route: 048
     Dates: start: 20150620, end: 20150628

REACTIONS (4)
  - Disorientation [Unknown]
  - Incoherent [Unknown]
  - Malaise [Recovered/Resolved with Sequelae]
  - Cerebrovascular accident [Recovered/Resolved with Sequelae]

NARRATIVE: CASE EVENT DATE: 20150622
